FAERS Safety Report 8611867-5 (Version None)
Quarter: 2012Q3

REPORT INFORMATION
  Report Type: 
  Country: None (occurrence: None)
  Receive Date: 20120822
  Receipt Date: 20120810
  Transmission Date: 20120928
  Serious: Yes (Life-Threatening)
  Sender: FDA-Public Use
  Company Number: DE-BRISTOL-MYERS SQUIBB COMPANY-16859357

PATIENT
  Age: 61 Year
  Sex: Male
  Weight: 80 kg

DRUGS (1)
  1. METFORMIN HCL [Suspect]
     Indication: DIABETES MELLITUS

REACTIONS (2)
  - HAEMODIALYSIS [None]
  - LACTIC ACIDOSIS [None]
